FAERS Safety Report 12614672 (Version 1)
Quarter: 2016Q3

REPORT INFORMATION
  Report Type: Spontaneous
  Country: US (occurrence: None)
  Receive Date: 20160801
  Receipt Date: 20160801
  Transmission Date: 20161109
  Serious: No
  Sender: FDA-Public Use
  Company Number: None

PATIENT
  Age: 50 Year
  Sex: Male
  Weight: 69.1 kg

DRUGS (2)
  1. LAMOTRIGINE. [Suspect]
     Active Substance: LAMOTRIGINE
     Indication: BIPOLAR I DISORDER
     Route: 048
     Dates: start: 20160330, end: 20160512
  2. BENZTROPINE [Suspect]
     Active Substance: BENZTROPINE
     Indication: RESTLESS LEGS SYNDROME
     Route: 048
     Dates: start: 20160330

REACTIONS (9)
  - Rash pruritic [None]
  - Myalgia [None]
  - Pruritus [None]
  - Musculoskeletal stiffness [None]
  - Swelling [None]
  - Rash [None]
  - Rash erythematous [None]
  - Anxiety [None]
  - Urticaria [None]

NARRATIVE: CASE EVENT DATE: 20160512
